FAERS Safety Report 8831478 (Version 1)
Quarter: 2012Q4

REPORT INFORMATION
  Report Type: 
  Country: US (occurrence: US)
  Receive Date: 20121008
  Receipt Date: 20121008
  Transmission Date: 20130627
  Serious: Yes (Other)
  Sender: FDA-Public Use
  Company Number: US-GLAXOSMITHKLINE-A0995999A

PATIENT
  Sex: Male

DRUGS (1)
  1. LAMICTAL [Suspect]
     Indication: PRODUCT USED FOR UNKNOWN INDICATION
     Dosage: 200MG Unknown
     Route: 065
     Dates: start: 20090210

REACTIONS (4)
  - Cholecystectomy [Unknown]
  - Pancreatitis [Unknown]
  - Pancreatic cyst [Unknown]
  - Pain [Unknown]
